FAERS Safety Report 16224815 (Version 2)
Quarter: 2020Q3

REPORT INFORMATION
  Report Type: Spontaneous
  Country: US (occurrence: US)
  Receive Date: 20190422
  Receipt Date: 20200110
  Transmission Date: 20201104
  Serious: No
  Sender: FDA-Public Use
  Company Number: US-ASTRAZENECA-2019SE57961

PATIENT
  Age: 54 Year
  Sex: Male

DRUGS (2)
  1. DURVALUMAB. [Suspect]
     Active Substance: DURVALUMAB
     Indication: SARCOMA
     Dosage: THREE DOSES OF DURVALUMAB 1500 MG
     Route: 042
  2. TREMELIMUMAB. [Suspect]
     Active Substance: TREMELIMUMAB
     Indication: SARCOMA
     Route: 065

REACTIONS (1)
  - Granulomatous lymphadenitis [Unknown]
